FAERS Safety Report 9299250 (Version 1)
Quarter: 2013Q2

REPORT INFORMATION
  Report Type: Spontaneous
  Country: US (occurrence: US)
  Receive Date: 20130520
  Receipt Date: 20130520
  Transmission Date: 20140414
  Serious: Yes (Other)
  Sender: FDA-Public Use
  Company Number: US-TEVA-405170USA

PATIENT
  Sex: Male
  Weight: 99.88 kg

DRUGS (12)
  1. COPAXONE [Suspect]
     Indication: MULTIPLE SCLEROSIS
     Dosage: DAILY
     Route: 058
  2. NUVIGIL [Concomitant]
     Indication: FATIGUE
     Dosage: FOUR TIMES A DAY
     Route: 048
     Dates: start: 201211
  3. HYDROCODONE [Concomitant]
     Dosage: AS NEEDED ; 10/325 FOUR TIMES A DAY
     Route: 048
  4. KLONIPIN [Concomitant]
     Indication: TREMOR
     Dosage: FOUR TIMES A DAY
     Route: 048
  5. PROZAC [Concomitant]
     Indication: DEPRESSION
     Dosage: DAILY
     Route: 048
  6. LITHIUM [Concomitant]
     Indication: DEPRESSION
     Dosage: DAILY
     Route: 048
  7. ONDANSETRON [Concomitant]
     Dosage: AS NEEDED
     Route: 048
  8. SUCRALFATE [Concomitant]
     Dosage: AS NEEDED
  9. ZANTAC [Concomitant]
     Indication: GASTROOESOPHAGEAL REFLUX DISEASE
  10. ADVAIR [Concomitant]
     Indication: DYSPNOEA
  11. VENTOLIN [Concomitant]
     Indication: DYSPNOEA
  12. BACLOFEN [Concomitant]

REACTIONS (2)
  - Cholecystectomy [Unknown]
  - Pain [Unknown]
